FAERS Safety Report 14098127 (Version 2)
Quarter: 2017Q4

REPORT INFORMATION
  Report Type: Spontaneous
  Country: IT (occurrence: IT)
  Receive Date: 20171017
  Receipt Date: 20171023
  Transmission Date: 20180321
  Serious: Yes (Disabling)
  Sender: FDA-Public Use
  Company Number: IT-ROCHE-2009146

PATIENT
  Age: 62 Year
  Sex: Male

DRUGS (8)
  1. TORVAST [Concomitant]
     Active Substance: ATORVASTATIN
     Indication: CARDIOVASCULAR EVENT PROPHYLAXIS
     Route: 048
     Dates: start: 20100101, end: 20171009
  2. BONVIVA [Suspect]
     Active Substance: IBANDRONATE SODIUM
     Indication: OSTEOPOROSIS
     Dosage: ^150 MG FILM-COATED TABLETS^
     Route: 048
     Dates: start: 20050101, end: 20151201
  3. LASIX [Concomitant]
     Active Substance: FUROSEMIDE
     Indication: CARDIOVASCULAR EVENT PROPHYLAXIS
     Route: 048
  4. METOPROLOL. [Concomitant]
     Active Substance: METOPROLOL
     Indication: ARRHYTHMIA
     Route: 048
     Dates: start: 20120101, end: 20171009
  5. DELTACORTENE [Concomitant]
     Active Substance: PREDNISONE
     Indication: POLYNEUROPATHY CHRONIC
     Dosage: ^5 MG TABLETS^ 10 TABLETS
     Route: 048
     Dates: start: 20050101, end: 20171009
  6. ZESTRIL [Concomitant]
     Active Substance: LISINOPRIL
     Indication: CARDIOVASCULAR EVENT PROPHYLAXIS
     Dosage: ^5 MG TABLETS^ 14 TABLETS
     Route: 048
     Dates: start: 20100101, end: 20171009
  7. PLAVIX [Concomitant]
     Active Substance: CLOPIDOGREL BISULFATE
     Indication: CARDIOVASCULAR EVENT PROPHYLAXIS
     Route: 048
  8. NOVORAPID [Concomitant]
     Active Substance: INSULIN ASPART
     Indication: DIABETES MELLITUS
     Route: 058

REACTIONS (2)
  - Fistula [Not Recovered/Not Resolved]
  - Osteonecrosis [Not Recovered/Not Resolved]

NARRATIVE: CASE EVENT DATE: 20170901
